FAERS Safety Report 22183663 (Version 1)
Quarter: 2023Q2

REPORT INFORMATION
  Report Type: Spontaneous
  Country: CA (occurrence: CA)
  Receive Date: 20230406
  Receipt Date: 20230406
  Transmission Date: 20230722
  Serious: Yes (Hospitalization)
  Sender: FDA-Public Use
  Company Number: CA-PFIZER INC-202300144881

PATIENT
  Age: 17 Year
  Sex: Female
  Weight: 57 kg

DRUGS (9)
  1. CIPROFLOXACIN [Suspect]
     Active Substance: CIPROFLOXACIN
     Indication: Device related infection
     Dosage: 400 MG (1 EVERY 8 HOURS)
     Route: 042
  2. LINEZOLID [Suspect]
     Active Substance: LINEZOLID
     Indication: Device related infection
     Dosage: UNK (1 EVERY 12 HOURS)
     Route: 048
  3. MEROPENEM [Suspect]
     Active Substance: MEROPENEM
     Indication: Device related infection
     Dosage: 2000 MG (1 EVERY 8 HOURS)
     Route: 042
  4. ROCEPHIN [Suspect]
     Active Substance: CEFTRIAXONE SODIUM
     Indication: Device related infection
     Dosage: 2000 MG (1 EVERY 12 HOURS)
     Route: 042
  5. MEDROXYPROGESTERONE [Concomitant]
     Active Substance: MEDROXYPROGESTERONE
     Dosage: UNK
  6. MOMETASONE FUROATE [Concomitant]
     Active Substance: MOMETASONE FUROATE
     Dosage: UNK
  7. RIZATRIPTAN [Concomitant]
     Active Substance: RIZATRIPTAN
     Dosage: UNK
  8. SYMBICORT [Concomitant]
     Active Substance: BUDESONIDE\FORMOTEROL FUMARATE DIHYDRATE
     Dosage: UNK
     Route: 055
  9. ERGOCALCIFEROL [Concomitant]
     Active Substance: ERGOCALCIFEROL
     Dosage: UNK

REACTIONS (2)
  - Clostridium difficile colitis [Recovered/Resolved]
  - Off label use [Unknown]
